FAERS Safety Report 13656549 (Version 3)
Quarter: 2017Q3

REPORT INFORMATION
  Report Type: Spontaneous
  Country: IT (occurrence: IT)
  Receive Date: 20170615
  Receipt Date: 20170807
  Transmission Date: 20171127
  Serious: Yes (Other)
  Sender: FDA-Public Use
  Company Number: IT-PFIZER INC-2017251115

PATIENT
  Age: 35 Year
  Sex: Female

DRUGS (4)
  1. BASSADO [Suspect]
     Active Substance: DOXYCYCLINE HYCLATE
     Indication: PROPHYLAXIS OF ABORTION
     Dosage: 100 MG, 2X/DAY
     Route: 048
     Dates: start: 20170527
  2. BASSADO [Suspect]
     Active Substance: DOXYCYCLINE HYCLATE
     Indication: ENDOMETRITIS
  3. MEDROL [Suspect]
     Active Substance: METHYLPREDNISOLONE
     Indication: PROPHYLAXIS OF ABORTION
     Dosage: 8 MG, 1X/DAY
     Route: 048
     Dates: start: 20170527
  4. MEDROL [Suspect]
     Active Substance: METHYLPREDNISOLONE
     Indication: ENDOMETRITIS

REACTIONS (6)
  - Product use in unapproved indication [Unknown]
  - Genital erythema [Recovered/Resolved]
  - Pelvic pain [Recovered/Resolved]
  - Vaginal cyst [Recovered/Resolved]
  - Abdominal pain [Recovered/Resolved]
  - Vaginal infection [Recovered/Resolved]

NARRATIVE: CASE EVENT DATE: 20170527
